FAERS Safety Report 10496156 (Version 1)
Quarter: 2014Q4

REPORT INFORMATION
  Report Type: Spontaneous
  Country: US (occurrence: US)
  Receive Date: 20141003
  Receipt Date: 20141003
  Transmission Date: 20150528
  Serious: Yes (Other)
  Sender: FDA-Public Use
  Company Number: US-RECKITT BENCKISER PHARMACEUTICAL, INC-RB-71900-2014

PATIENT
  Age: 61 Year
  Sex: Female

DRUGS (3)
  1. UNSPECIFIED ANTICONVULSANT [Concomitant]
     Active Substance: UNSPECIFIED INGREDIENT
     Indication: SEIZURE
     Dosage: UNK
     Route: 048
  2. BUPRENEX [Suspect]
     Active Substance: BUPRENORPHINE HYDROCHLORIDE
     Indication: PAIN
     Dosage: 0.6 MG, BID AS NEEDED
     Route: 030
  3. BUPRENEX [Suspect]
     Active Substance: BUPRENORPHINE HYDROCHLORIDE
     Dosage: 6-7 VIALS LAST BY TAKING ONLY 1/2 ML, DAILY (0.15MG)
     Route: 030

REACTIONS (5)
  - Chest pain [Unknown]
  - Dyspnoea [Unknown]
  - Pulmonary embolism [Not Recovered/Not Resolved]
  - Feeling jittery [Not Recovered/Not Resolved]
  - Intentional underdose [Unknown]

NARRATIVE: CASE EVENT DATE: 201409
